FAERS Safety Report 20546323 (Version 5)
Quarter: 2023Q2

REPORT INFORMATION
  Report Type: Spontaneous
  Country: US (occurrence: US)
  Receive Date: 20220303
  Receipt Date: 20230418
  Transmission Date: 20230722
  Serious: Yes (Hospitalization, Disabling, Other)
  Sender: FDA-Public Use
  Company Number: US-ORGANON-O2203USA000205

PATIENT
  Sex: Female

DRUGS (3)
  1. SINGULAIR [Suspect]
     Active Substance: MONTELUKAST SODIUM
     Indication: Hypersensitivity
     Dosage: UNK UNK, HS (BEDTIME)
     Route: 048
  2. SINGULAIR [Suspect]
     Active Substance: MONTELUKAST SODIUM
     Dosage: UNK UNK, HS (BEDTIME)
     Route: 048
     Dates: start: 2007, end: 2012
  3. SINGULAIR [Suspect]
     Active Substance: MONTELUKAST SODIUM
     Dosage: ONE TABLET EVERY MORNING
     Route: 048
     Dates: start: 20180409

REACTIONS (33)
  - Neuropsychiatric symptoms [Not Recovered/Not Resolved]
  - Borderline personality disorder [Not Recovered/Not Resolved]
  - Major depression [Not Recovered/Not Resolved]
  - Behaviour disorder [Not Recovered/Not Resolved]
  - Tardive dyskinesia [Not Recovered/Not Resolved]
  - Disruptive mood dysregulation disorder [Unknown]
  - Heart rate increased [Unknown]
  - Sinus tachycardia [Unknown]
  - Migraine [Unknown]
  - Panic attack [Unknown]
  - Self-injurious ideation [Unknown]
  - Body dysmorphic disorder [Unknown]
  - Thinking abnormal [Unknown]
  - Intentional self-injury [Unknown]
  - Suicide attempt [Unknown]
  - Suicidal ideation [Unknown]
  - Suicide attempt [Unknown]
  - Suicide attempt [Unknown]
  - Major depression [Unknown]
  - Ankle fracture [Unknown]
  - Wrist fracture [Unknown]
  - Tic [Unknown]
  - Anxiety [Not Recovered/Not Resolved]
  - Seizure [Unknown]
  - Depression [Not Recovered/Not Resolved]
  - Palpitations [Unknown]
  - Radius fracture [Recovered/Resolved]
  - Ankle fracture [Recovered/Resolved]
  - Acute stress disorder [Unknown]
  - Nightmare [Unknown]
  - Anger [Unknown]
  - Self-injurious ideation [Unknown]
  - Road traffic accident [Unknown]

NARRATIVE: CASE EVENT DATE: 20150801
